FAERS Safety Report 17503623 (Version 4)
Quarter: 2020Q2

REPORT INFORMATION
  Report Type: Spontaneous
  Country: US (occurrence: US)
  Receive Date: 20200305
  Receipt Date: 20200610
  Transmission Date: 20200713
  Serious: Yes (Hospitalization, Other)
  Sender: FDA-Public Use
  Company Number: US-GILEAD-2020-0453426

PATIENT
  Age: 64 Year
  Sex: Male
  Weight: 62.13 kg

DRUGS (17)
  1. FLUDARABINE [Concomitant]
     Active Substance: FLUDARABINE PHOSPHATE
     Dosage: UNK
     Dates: end: 20200124
  2. FAMOTIDINE. [Concomitant]
     Active Substance: FAMOTIDINE
  3. NYSTATIN. [Concomitant]
     Active Substance: NYSTATIN
  4. DRONABINOL. [Concomitant]
     Active Substance: DRONABINOL
  5. AMYLASE/LIPASE/PROTEASE [Concomitant]
     Active Substance: AMYLASE\LIPASE\PROTEASE
  6. URSODIOL. [Concomitant]
     Active Substance: URSODIOL
  7. SODIUM BICARBONATE. [Concomitant]
     Active Substance: SODIUM BICARBONATE
  8. YESCARTA [Suspect]
     Active Substance: AXICABTAGENE CILOLEUCEL
     Indication: DIFFUSE LARGE B-CELL LYMPHOMA
     Dosage: UNK; INFUSION
     Route: 065
     Dates: start: 20200127, end: 20200127
  9. CODEINE AND GUAIFENESIN [Concomitant]
     Active Substance: CODEINE\GUAIFENESIN
  10. ACETAMINOPHEN. [Concomitant]
     Active Substance: ACETAMINOPHEN
  11. CEFEPIME [Concomitant]
     Active Substance: CEFEPIME HYDROCHLORIDE
  12. MICAFUNGIN. [Concomitant]
     Active Substance: MICAFUNGIN SODIUM
  13. SODIUM CHLORIDE. [Concomitant]
     Active Substance: SODIUM CHLORIDE
  14. CYCLOPHOSPHAMIDE. [Concomitant]
     Active Substance: CYCLOPHOSPHAMIDE
     Dosage: UNK
     Dates: end: 20200124
  15. LEVETIRACETAM. [Concomitant]
     Active Substance: LEVETIRACETAM
  16. CREON [Concomitant]
     Active Substance: PANCRELIPASE AMYLASE\PANCRELIPASE LIPASE\PANCRELIPASE PROTEASE
  17. MAGNESIUM AMINO ACID CHELATE;MAGNESIUM OXIDE [Concomitant]

REACTIONS (8)
  - Haemophagocytic lymphohistiocytosis [Recovering/Resolving]
  - Thinking abnormal [Recovered/Resolved]
  - Aphasia [Recovered/Resolved]
  - Bradycardia [Recovered/Resolved]
  - Cytokine release syndrome [Recovering/Resolving]
  - Febrile neutropenia [Recovering/Resolving]
  - Nervous system disorder [Recovered/Resolved]
  - Wernicke^s encephalopathy [Recovered/Resolved]

NARRATIVE: CASE EVENT DATE: 202002
